FAERS Safety Report 4817251-4 (Version None)
Quarter: 2005Q4

REPORT INFORMATION
  Report Type: 
  Country: None (occurrence: None)
  Receive Date: 20051018
  Receipt Date: 20050224
  Transmission Date: 20060501
  Serious: Yes (Hospitalization, Other)
  Sender: FDA-Public Use
  Company Number: PHEH2005US02521

PATIENT
  Age: 76 Year
  Sex: Female

DRUGS (7)
  1. ZOMETA [Suspect]
     Indication: MULTIPLE MYELOMA
     Dosage: 4 MG, QMO, IV INFUSION
     Dates: start: 20050202, end: 20050202
  2. DILTIAZEM [Concomitant]
  3. PRAVACHOL [Concomitant]
  4. ASPIRINA INFANTIL (ACETYLSALICYLIC ACID) [Concomitant]
  5. DURAGESIC-100 [Concomitant]
  6. PAXIL [Concomitant]
  7. DECADRON/CAN/(DEXAMETHASONE) [Concomitant]

REACTIONS (6)
  - BLOOD CALCIUM DECREASED [None]
  - BLOOD CREATININE INCREASED [None]
  - BLOOD UREA INCREASED [None]
  - NAUSEA [None]
  - RENAL FAILURE [None]
  - VOMITING [None]
